FAERS Safety Report 4759326-4 (Version None)
Quarter: 2005Q3

REPORT INFORMATION
  Report Type: 
  Country: None (occurrence: None)
  Receive Date: 20050831
  Receipt Date: 20050815
  Transmission Date: 20060218
  Serious: Yes (Other)
  Sender: FDA-Public Use
  Company Number: USA0508105488

PATIENT
  Sex: Female

DRUGS (2)
  1. GEMZAR [Suspect]
     Indication: BREAST CANCER
     Dates: start: 20050101, end: 20050101
  2. HERCEPTIN [Concomitant]

REACTIONS (1)
  - RECALL PHENOMENON [None]
